FAERS Safety Report 22520517 (Version 1)
Quarter: 2023Q2

REPORT INFORMATION
  Report Type: Spontaneous
  Country: JP (occurrence: JP)
  Receive Date: 20230605
  Receipt Date: 20230605
  Transmission Date: 20230722
  Serious: Yes (Other)
  Sender: FDA-Public Use
  Company Number: JP-BRISTOL-MYERS SQUIBB COMPANY-2022-128331

PATIENT
  Age: 71 Year
  Sex: Female

DRUGS (3)
  1. TRIAMCINOLONE ACETONIDE [Suspect]
     Active Substance: TRIAMCINOLONE ACETONIDE
     Indication: Macular oedema
     Route: 031
  2. AFLIBERCEPT [Concomitant]
     Active Substance: AFLIBERCEPT
     Indication: Macular oedema
     Dosage: WHEN THE SYMPTOMS WERE EXACERBATED, INTRAVITREAL INJECTION
     Route: 065
  3. DICLOFENAC SODIUM [Concomitant]
     Active Substance: DICLOFENAC SODIUM
     Indication: Macular oedema
     Dosage: EYE DROP
     Route: 065

REACTIONS (3)
  - Nocardiosis [Recovering/Resolving]
  - Eye abscess [Recovering/Resolving]
  - Off label use [Unknown]
